FAERS Safety Report 12489571 (Version 1)
Quarter: 2016Q2

REPORT INFORMATION
  Report Type: Spontaneous
  Country: GB (occurrence: GB)
  Receive Date: 20160622
  Receipt Date: 20160622
  Transmission Date: 20160815
  Serious: Yes (Hospitalization, Other)
  Sender: FDA-Public Use
  Company Number: PHHY2016GB082323

PATIENT
  Age: 56 Year
  Sex: Female

DRUGS (3)
  1. METFORMIN [Suspect]
     Active Substance: METFORMIN HYDROCHLORIDE
     Indication: TYPE 2 DIABETES MELLITUS
     Dosage: UNK
     Route: 048
  2. AMLODIPINE [Concomitant]
     Active Substance: AMLODIPINE BESYLATE
     Indication: HYPERTENSION
     Dosage: 10 MG, UNK
     Route: 065
  3. RAMIPRIL. [Concomitant]
     Active Substance: RAMIPRIL
     Indication: HYPERTENSION
     Dosage: 10 MG, QD
     Route: 065

REACTIONS (12)
  - Pyelonephritis acute [Not Recovered/Not Resolved]
  - Pulmonary embolism [Recovered/Resolved]
  - Chest discomfort [Unknown]
  - Pyrexia [Recovered/Resolved]
  - Dyspnoea [Unknown]
  - Escherichia sepsis [Unknown]
  - Renal vein thrombosis [Recovered/Resolved]
  - Diabetes mellitus inadequate control [Recovering/Resolving]
  - Hyperosmolar hyperglycaemic state [Unknown]
  - Systemic inflammatory response syndrome [Unknown]
  - Ketosis [Unknown]
  - Vena cava thrombosis [Unknown]
